FAERS Safety Report 10566167 (Version 1)
Quarter: 2014Q4

REPORT INFORMATION
  Report Type: Spontaneous
  Country: US (occurrence: None)
  Receive Date: 20141104
  Receipt Date: 20141104
  Transmission Date: 20150529
  Serious: No
  Sender: FDA-Public Use
  Company Number: None

PATIENT
  Age: 65 Year
  Sex: Female
  Weight: 78.02 kg

DRUGS (1)
  1. BELVIQ [Suspect]
     Active Substance: LORCASERIN HYDROCHLORIDE
     Indication: WEIGHT CONTROL
     Dosage: 1 PILL  TWICE DAILY --
     Dates: start: 20141024, end: 20141024

REACTIONS (5)
  - Nausea [None]
  - Asthenia [None]
  - Malaise [None]
  - Palpitations [None]
  - Influenza like illness [None]

NARRATIVE: CASE EVENT DATE: 20141024
